FAERS Safety Report 7531220-5 (Version None)
Quarter: 2011Q2

REPORT INFORMATION
  Report Type: 
  Country: None (occurrence: None)
  Receive Date: 20110531
  Receipt Date: 20110517
  Transmission Date: 20111010
  Serious: Yes (Hospitalization)
  Sender: FDA-Public Use
  Company Number: 2011SP022771

PATIENT
  Age: 67 Year
  Sex: Female

DRUGS (3)
  1. EPREX [Concomitant]
  2. REBETOL [Suspect]
     Indication: HEPATITIS C
  3. PEG-INTRON [Suspect]
     Indication: HEPATITIS C
     Dosage: 17 MG;QD;SC
     Route: 058
     Dates: start: 20090921, end: 20100614

REACTIONS (3)
  - CEREBROVASCULAR ACCIDENT [None]
  - HAEMORRHAGE [None]
  - HEMIPLEGIA [None]
